FAERS Safety Report 9286814 (Version 2)
Quarter: 2014Q3

REPORT INFORMATION
  Report Type: Report from Study
  Country: US (occurrence: US)
  Receive Date: 20130513
  Receipt Date: 20140926
  Transmission Date: 20150326
  Serious: Yes (Hospitalization)
  Sender: FDA-Public Use
  Company Number: US-ALEXION PHARMACEUTICALS INC.-A201301010

PATIENT
  Age: 0 Day
  Sex: Male
  Weight: 1.4 kg

DRUGS (6)
  1. SOLIRIS [Suspect]
     Active Substance: ECULIZUMAB
     Indication: PAROXYSMAL NOCTURNAL HAEMOGLOBINURIA
     Dosage: UNK
     Route: 064
  2. SOLIRIS [Suspect]
     Active Substance: ECULIZUMAB
     Dosage: 1200 MG, UNK
     Route: 042
     Dates: start: 20130422
  3. SOLIRIS [Suspect]
     Active Substance: ECULIZUMAB
     Dosage: 900 MG, Q14D
     Route: 042
     Dates: start: 20130513
  4. SOLIRIS [Suspect]
     Active Substance: ECULIZUMAB
  5. ENOXAPARIN [Suspect]
     Active Substance: ENOXAPARIN
     Dosage: UNK
     Route: 064
  6. ZOFRAN [Suspect]
     Active Substance: ONDANSETRON HYDROCHLORIDE
     Dosage: UNK
     Route: 064

REACTIONS (3)
  - Foetal exposure during pregnancy [Unknown]
  - Premature baby [Unknown]
  - Low birth weight baby [Unknown]

NARRATIVE: CASE EVENT DATE: 20130428
